FAERS Safety Report 19514917 (Version 1)
Quarter: 2021Q3

REPORT INFORMATION
  Report Type: Spontaneous
  Country: FR (occurrence: FR)
  Receive Date: 20210709
  Receipt Date: 20210709
  Transmission Date: 20211014
  Serious: Yes (Other)
  Sender: FDA-Public Use
  Company Number: FR-PFIZER INC-2021803003

PATIENT
  Age: 26 Year
  Sex: Female
  Weight: 74 kg

DRUGS (6)
  1. IZALGI [Suspect]
     Active Substance: ACETAMINOPHEN\OPIUM
     Dosage: 2 DF, 2X/DAY AT 8 AM AND 7 PM EVERY DAY
     Route: 048
  2. CODEINE [Suspect]
     Active Substance: CODEINE
     Dosage: UNK
     Route: 065
  3. ALIMEMAZINE [Suspect]
     Active Substance: TRIMEPRAZINE
     Dosage: 15 MG, 1X/DAY IN THE EVENING
     Route: 048
  4. PRAZEPAM [Suspect]
     Active Substance: PRAZEPAM
     Dosage: UNK
     Route: 048
  5. CANNABIS [Suspect]
     Active Substance: CANNABIS SATIVA SUBSP. INDICA TOP
     Route: 065
     Dates: start: 202009, end: 20210421
  6. PREGABALIN. [Suspect]
     Active Substance: PREGABALIN
     Dosage: UNK
     Route: 065

REACTIONS (5)
  - Confusional state [Recovered/Resolved]
  - Somnolence [Recovered/Resolved]
  - Apathy [Recovered/Resolved]
  - Headache [Recovered/Resolved]
  - Drug abuse [Not Recovered/Not Resolved]

NARRATIVE: CASE EVENT DATE: 20210421
